FAERS Safety Report 5599377-3 (Version None)
Quarter: 2007Q4

REPORT INFORMATION
  Report Type: 
  Country: None (occurrence: None)
  Receive Date: 20071226
  Receipt Date: 20071116
  Transmission Date: 20080405
  Serious: No
  Sender: FDA-Public Use
  Company Number: 2007PV033731

PATIENT
  Age: 49 Year
  Sex: Female

DRUGS (3)
  1. SYMLIN [Suspect]
     Indication: TYPE 2 DIABETES MELLITUS
     Dosage: 60M 360 MCG, SC
     Route: 058
     Dates: start: 20071109
  2. SYMLIN [Suspect]
     Indication: TYPE 2 DIABETES MELLITUS
     Dosage: 60M 360 MCG, SC
     Route: 058
     Dates: start: 20071116
  3. NOVOLOG [Concomitant]

REACTIONS (1)
  - INCORRECT DOSE ADMINISTERED [None]
